FAERS Safety Report 5445075-6 (Version None)
Quarter: 2007Q3

REPORT INFORMATION
  Report Type: 
  Country: None (occurrence: None)
  Receive Date: 20070906
  Receipt Date: 20070321
  Transmission Date: 20080115
  Serious: Yes (Hospitalization)
  Sender: FDA-Public Use
  Company Number: AU-PFIZER INC-2006091945

PATIENT
  Sex: Female
  Weight: 82 kg

DRUGS (5)
  1. SUTENT [Suspect]
     Indication: METASTATIC RENAL CELL CARCINOMA
     Route: 048
  2. RABEPRAZOLE SODIUM [Concomitant]
     Route: 048
  3. MERSYNDOL [Concomitant]
     Route: 048
     Dates: start: 20050101
  4. MURELAX [Concomitant]
     Route: 048
     Dates: start: 20000101
  5. PANADOL [Concomitant]
     Route: 048

REACTIONS (4)
  - NAUSEA [None]
  - PAIN [None]
  - THROMBOCYTOPENIA [None]
  - VOMITING [None]
